FAERS Safety Report 23331204 (Version 1)
Quarter: 2023Q4

REPORT INFORMATION
  Report Type: Spontaneous
  Country: IT (occurrence: IT)
  Receive Date: 20231222
  Receipt Date: 20231222
  Transmission Date: 20240110
  Serious: Yes (Other)
  Sender: FDA-Public Use
  Company Number: IT-BEH-2023166437

PATIENT
  Age: 30 Year
  Sex: Female

DRUGS (3)
  1. FIBRINOGEN HUMAN [Suspect]
     Active Substance: FIBRINOGEN HUMAN
     Indication: Factor I deficiency
     Route: 065
  2. FIBRINOGEN HUMAN [Suspect]
     Active Substance: FIBRINOGEN HUMAN
     Indication: Haemorrhage prophylaxis
  3. FIBRINOGEN HUMAN [Suspect]
     Active Substance: FIBRINOGEN HUMAN
     Indication: Haemorrhage

REACTIONS (5)
  - Hepatic vein thrombosis [Unknown]
  - Abdominal pain [Unknown]
  - Haematoma [Unknown]
  - Budd-Chiari syndrome [Unknown]
  - Subdural haematoma [Unknown]
